FAERS Safety Report 16251664 (Version 1)
Quarter: 2019Q2

REPORT INFORMATION
  Report Type: Report from Study
  Country: RO (occurrence: RO)
  Receive Date: 20190429
  Receipt Date: 20190429
  Transmission Date: 20190711
  Serious: Yes (Hospitalization, Other)
  Sender: FDA-Public Use
  Company Number: RO-GILEAD-2019-0404784

PATIENT
  Age: 66 Year
  Sex: Female

DRUGS (5)
  1. SINGULAIR [Concomitant]
     Active Substance: MONTELUKAST SODIUM
     Indication: ASTHMA
  2. ALMACOR [Concomitant]
     Indication: CARDIAC DISORDER
  3. ANXIAR [Concomitant]
     Active Substance: LORAZEPAM
     Indication: NERVOUSNESS
  4. LEDIPASVIR/SOFOSBUVIR [Suspect]
     Active Substance: LEDIPASVIR\SOFOSBUVIR
     Indication: CHRONIC HEPATITIS C
     Dosage: 1 DOSAGE FORM, QD
     Route: 048
     Dates: start: 20190130, end: 20190423
  5. ANXIAR [Concomitant]
     Active Substance: LORAZEPAM
     Indication: INSOMNIA

REACTIONS (7)
  - Headache [Recovered/Resolved]
  - Atrial fibrillation [Recovered/Resolved]
  - Red blood cell sedimentation rate increased [Recovered/Resolved]
  - Chest pain [Recovered/Resolved]
  - Eye infection [Recovered/Resolved]
  - Urinary tract infection [Recovered/Resolved]
  - Dyspepsia [Recovered/Resolved]

NARRATIVE: CASE EVENT DATE: 20190130
